FAERS Safety Report 20959961 (Version 1)
Quarter: 2022Q2

REPORT INFORMATION
  Report Type: Spontaneous
  Country: US (occurrence: US)
  Receive Date: 20220615
  Receipt Date: 20220615
  Transmission Date: 20220720
  Serious: No
  Sender: FDA-Public Use
  Company Number: US-JNJFOC-20220606335

PATIENT

DRUGS (1)
  1. TYLENOL 8 HR ARTHRITIS PAIN [Suspect]
     Active Substance: ACETAMINOPHEN
     Indication: Pain in extremity
     Dosage: 2 PILLS A NIGHT
     Route: 065

REACTIONS (1)
  - Inappropriate schedule of product administration [Unknown]
